FAERS Safety Report 13134623 (Version 1)
Quarter: 2017Q1

REPORT INFORMATION
  Report Type: Spontaneous
  Country: DE (occurrence: DE)
  Receive Date: 20170120
  Receipt Date: 20170120
  Transmission Date: 20170428
  Serious: Yes (Other)
  Sender: FDA-Public Use
  Company Number: DE-PFIZER INC-2017023156

PATIENT
  Sex: Female

DRUGS (1)
  1. TAVOR (LORAZEPAM) [Suspect]
     Active Substance: LORAZEPAM
     Dosage: ONE TABLET 1 MG AND 1/X HALF A TABLET, DAILY

REACTIONS (7)
  - Blood pressure increased [Unknown]
  - Vision blurred [Unknown]
  - Grip strength decreased [Unknown]
  - Speech disorder [Unknown]
  - Incorrect drug administration duration [Unknown]
  - Drug effect decreased [Unknown]
  - Memory impairment [Unknown]
